FAERS Safety Report 20883268 (Version 1)
Quarter: 2022Q2

REPORT INFORMATION
  Report Type: Report from Study
  Country: US (occurrence: US)
  Receive Date: 20220527
  Receipt Date: 20220527
  Transmission Date: 20220721
  Serious: Yes (Other)
  Sender: FDA-Public Use
  Company Number: US-MYLANLABS-2022M1038699

PATIENT
  Sex: Male

DRUGS (1)
  1. FULPHILA [Suspect]
     Active Substance: PEGFILGRASTIM-JMDB
     Indication: Prostate cancer
     Dosage: 6 MILLIGRAM, ONCE, 6MG/0.6ML PFS 1 PK, INJECT 0.6ML UNDER THE SKIN 24-72 HOURS
     Route: 058

REACTIONS (1)
  - Prostate cancer [Unknown]
